FAERS Safety Report 20653564 (Version 1)
Quarter: 2022Q1

REPORT INFORMATION
  Report Type: Spontaneous
  Country: US (occurrence: US)
  Receive Date: 20220330
  Receipt Date: 20220330
  Transmission Date: 20220423
  Serious: No
  Sender: FDA-Public Use
  Company Number: US-PFIZER INC-202101084504

PATIENT
  Age: 64 Year
  Sex: Female

DRUGS (1)
  1. EUCRISA [Suspect]
     Active Substance: CRISABOROLE
     Dosage: APPLY A THIN LAYER TO HANDS AND AFFECTED AREA TWICE DAILY

REACTIONS (1)
  - Influenza [Unknown]
